FAERS Safety Report 4302787-5 (Version None)
Quarter: 2004Q1

REPORT INFORMATION
  Report Type: 
  Country: None (occurrence: None)
  Receive Date: 20040224
  Receipt Date: 20030520
  Transmission Date: 20041129
  Serious: Yes (Hospitalization)
  Sender: FDA-Public Use
  Company Number: PHBS2003JP05284

PATIENT
  Age: 33 Year
  Sex: Male
  Weight: 60 kg

DRUGS (3)
  1. TEGRETOL [Suspect]
     Indication: EPILEPSY
     Dosage: 200 MG/DAY
     Route: 048
     Dates: start: 20030423, end: 20030424
  2. TEGRETOL [Suspect]
     Dosage: 400 MG/DAY
     Route: 048
     Dates: start: 20030425, end: 20030427
  3. EXCEGRAN [Suspect]
     Dosage: 300 MG/DAY
     Route: 048
     Dates: start: 20030425, end: 20030514

REACTIONS (3)
  - CANDIDIASIS [None]
  - DRUG ERUPTION [None]
  - HYPERSENSITIVITY [None]
